FAERS Safety Report 10498421 (Version 2)
Quarter: 2014Q4

REPORT INFORMATION
  Report Type: Report from Study
  Country: US (occurrence: US)
  Receive Date: 20141006
  Receipt Date: 20141125
  Transmission Date: 20150528
  Serious: Yes (Hospitalization)
  Sender: FDA-Public Use
  Company Number: US-ACTELION-A-US2014-105920

PATIENT
  Age: 50 Year
  Sex: Female

DRUGS (17)
  1. COUMADIN [Concomitant]
     Active Substance: WARFARIN SODIUM
  2. LEVOXYL [Concomitant]
     Active Substance: LEVOTHYROXINE SODIUM
  3. DOBUTAMINE [Concomitant]
     Active Substance: DOBUTAMINE\DOBUTAMINE HYDROCHLORIDE
  4. ZYPREXA [Concomitant]
     Active Substance: OLANZAPINE
  5. TORASEMIDE [Concomitant]
     Active Substance: TORSEMIDE
  6. IMODIUM [Concomitant]
     Active Substance: LOPERAMIDE HYDROCHLORIDE
  7. NEUROTIN [Concomitant]
  8. ZAROXOLYN [Concomitant]
     Active Substance: METOLAZONE
  9. ZOFRAN [Concomitant]
     Active Substance: ONDANSETRON HYDROCHLORIDE
  10. VELETRI [Suspect]
     Active Substance: EPOPROSTENOL
     Indication: PULMONARY ARTERIAL HYPERTENSION
     Dosage: 41.5 NG/KG, PER MIN
     Route: 042
     Dates: start: 20120105
  11. TRACLEER [Suspect]
     Active Substance: BOSENTAN\BOSENTAN MONOHYDRATE
     Indication: PULMONARY ARTERIAL HYPERTENSION
     Dosage: UNK
     Route: 048
     Dates: start: 20080823
  12. REMERON [Concomitant]
     Active Substance: MIRTAZAPINE
  13. ALDACTONE [Concomitant]
     Active Substance: SPIRONOLACTONE
  14. MIDODRINE [Concomitant]
     Active Substance: MIDODRINE
  15. TACROLIMUS. [Concomitant]
     Active Substance: TACROLIMUS
  16. REVATIO [Concomitant]
     Active Substance: SILDENAFIL CITRATE
  17. DIGOXIN. [Concomitant]
     Active Substance: DIGOXIN

REACTIONS (7)
  - Catheter site warmth [Recovered/Resolved]
  - Staphylococcus test positive [Recovered/Resolved]
  - Device related infection [Recovered/Resolved]
  - Catheter site pain [Recovered/Resolved]
  - Blood culture negative [Recovered/Resolved]
  - Catheter site infection [Recovered/Resolved]
  - Catheter culture positive [Recovered/Resolved]

NARRATIVE: CASE EVENT DATE: 20140911
